FAERS Safety Report 6807195-0 (Version None)
Quarter: 2010Q2

REPORT INFORMATION
  Report Type: 
  Country: None (occurrence: None)
  Receive Date: 20100628
  Receipt Date: 20100628
  Transmission Date: 20101027
  Serious: Yes (Hospitalization)
  Sender: FDA-Public Use
  Company Number: None

PATIENT
  Age: 73 Year
  Sex: Female

DRUGS (1)
  1. OCTREOTIDE 50 MCG [Suspect]
     Dosage: 50 MCG EVERY 8 HOURS SQ
     Route: 058
     Dates: start: 20100323, end: 20100501

REACTIONS (1)
  - COLONIC OBSTRUCTION [None]
